FAERS Safety Report 10048048 (Version 2)
Quarter: 2014Q2

REPORT INFORMATION
  Report Type: Spontaneous
  Country: US (occurrence: US)
  Receive Date: 20140331
  Receipt Date: 20140418
  Transmission Date: 20141212
  Serious: Yes (Hospitalization, Other)
  Sender: FDA-Public Use
  Company Number: US-PFIZER INC-2014086850

PATIENT
  Age: 58 Year
  Sex: Female
  Weight: 107 kg

DRUGS (2)
  1. LYRICA [Suspect]
     Indication: FIBROMYALGIA
     Dosage: 150 MG, 2X/DAY
  2. LISINOPRIL [Suspect]
     Indication: BLOOD PRESSURE ABNORMAL
     Dosage: 40 MG, 2X/DAY

REACTIONS (3)
  - Cellulitis [Recovering/Resolving]
  - Renal failure acute [Unknown]
  - Hypophagia [Unknown]
